FAERS Safety Report 16613426 (Version 1)
Quarter: 2019Q3

REPORT INFORMATION
  Report Type: Report from Study
  Country: None (occurrence: US)
  Receive Date: 20190723
  Receipt Date: 20190723
  Transmission Date: 20191004
  Serious: Yes (Hospitalization)
  Sender: FDA-Public Use
  Company Number: US-ABBVIE-19K-163-2858446-00

PATIENT
  Age: 79 Year
  Sex: Female
  Weight: 70.82 kg

DRUGS (2)
  1. HUMIRA [Suspect]
     Active Substance: ADALIMUMAB
     Indication: RHEUMATOID ARTHRITIS
     Route: 058
     Dates: start: 20190206, end: 2019
  2. HUMIRA [Suspect]
     Active Substance: ADALIMUMAB
     Route: 058
     Dates: start: 2019

REACTIONS (23)
  - Mobility decreased [Unknown]
  - Depression [Unknown]
  - Fluid intake reduced [Unknown]
  - Anxiety [Unknown]
  - Eyelid pain [Unknown]
  - Hypophagia [Unknown]
  - Hyperhidrosis [Unknown]
  - Loss of personal independence in daily activities [Unknown]
  - Musculoskeletal stiffness [Unknown]
  - Tremor [Unknown]
  - Back pain [Unknown]
  - Nausea [Unknown]
  - Disorientation [Unknown]
  - Confusional state [Unknown]
  - Swelling [Unknown]
  - Musculoskeletal pain [Unknown]
  - Pain [Unknown]
  - Asthenia [Unknown]
  - Swelling of eyelid [Unknown]
  - Impaired self-care [Unknown]
  - Abdominal pain [Not Recovered/Not Resolved]
  - Lethargy [Unknown]
  - Dysstasia [Unknown]

NARRATIVE: CASE EVENT DATE: 2019
